FAERS Safety Report 10110958 (Version 1)
Quarter: 2014Q2

REPORT INFORMATION
  Report Type: Spontaneous
  Country: US (occurrence: US)
  Receive Date: 20140425
  Receipt Date: 20140425
  Transmission Date: 20141212
  Serious: Yes (Other)
  Sender: FDA-Public Use
  Company Number: US-AMGEN INC.-USASP2014029192

PATIENT
  Sex: Female

DRUGS (3)
  1. PROLIA [Suspect]
     Indication: OSTEOPOROSIS POSTMENOPAUSAL
     Route: 065
  2. CALTRATE                           /00944201/ [Concomitant]
     Dosage: 1200 MG, BID
  3. VITAMIN D                          /00107901/ [Concomitant]
     Dosage: 800 IU, BID

REACTIONS (2)
  - Strabismus [Unknown]
  - Visual impairment [Unknown]
